FAERS Safety Report 6059413-7 (Version None)
Quarter: 2009Q1

REPORT INFORMATION
  Report Type: 
  Country: None (occurrence: None)
  Receive Date: 20090130
  Receipt Date: 20090122
  Transmission Date: 20090719
  Serious: Yes (Hospitalization)
  Sender: FDA-Public Use
  Company Number: CA-AMGEN-US325548

PATIENT
  Sex: Male
  Weight: 59 kg

DRUGS (7)
  1. PANITUMUMAB [Suspect]
     Indication: SQUAMOUS CELL CARCINOMA
     Route: 042
     Dates: start: 20081211
  2. HYDROMORPHONE HCL [Concomitant]
  3. DILAUDID [Concomitant]
  4. COLACE [Concomitant]
  5. LIPITOR [Concomitant]
  6. SENOKOT [Concomitant]
  7. GRAVOL TAB [Concomitant]

REACTIONS (1)
  - DEHYDRATION [None]
